FAERS Safety Report 19888059 (Version 1)
Quarter: 2021Q3

REPORT INFORMATION
  Report Type: Spontaneous
  Country: BG (occurrence: BG)
  Receive Date: 20210928
  Receipt Date: 20210928
  Transmission Date: 20211014
  Serious: Yes (Hospitalization, Other)
  Sender: FDA-Public Use
  Company Number: BG-SA-2021SA316351

PATIENT
  Age: 64 Year
  Sex: Male

DRUGS (2)
  1. IRBESARTAN. [Suspect]
     Active Substance: IRBESARTAN
     Indication: HYPERTENSION
     Dosage: ONE TABLET DAILY . AFTER 6 MONTHS THIS DOSE WAS REDUCED TO HALF A TABLET.
     Route: 048
     Dates: start: 20171207, end: 20210626
  2. METFORMIN [Concomitant]
     Active Substance: METFORMIN HYDROCHLORIDE
     Indication: TYPE 2 DIABETES MELLITUS
     Dosage: 1TABLET THREE TIMES PER DAY
     Route: 048

REACTIONS (3)
  - Transitional cell carcinoma [Not Recovered/Not Resolved]
  - Rash [Not Recovered/Not Resolved]
  - Parapsoriasis [Not Recovered/Not Resolved]

NARRATIVE: CASE EVENT DATE: 2019
